FAERS Safety Report 20353281 (Version 1)
Quarter: 2022Q1

REPORT INFORMATION
  Report Type: Report from Study
  Country: JP (occurrence: JP)
  Receive Date: 20220119
  Receipt Date: 20220119
  Transmission Date: 20220423
  Serious: Yes (Hospitalization)
  Sender: FDA-Public Use
  Company Number: JP-BIOGEN-2022BI01087066

PATIENT
  Age: 29 Year
  Sex: Male
  Weight: 99.3 kg

DRUGS (1)
  1. TECFIDERA [Suspect]
     Active Substance: DIMETHYL FUMARATE
     Indication: Relapsing-remitting multiple sclerosis
     Route: 048
     Dates: start: 20171110, end: 20180408

REACTIONS (5)
  - Multiple sclerosis relapse [Recovered/Resolved]
  - Aspartate aminotransferase increased [Recovered/Resolved]
  - Alanine aminotransferase increased [Recovered/Resolved]
  - Therapeutic product effect incomplete [Unknown]
  - Underdose [Unknown]

NARRATIVE: CASE EVENT DATE: 20171115
